FAERS Safety Report 23216006 (Version 1)
Quarter: 2023Q4

REPORT INFORMATION
  Report Type: Spontaneous
  Country: US (occurrence: US)
  Receive Date: 20231122
  Receipt Date: 20231122
  Transmission Date: 20240110
  Serious: Yes (Other)
  Sender: FDA-Public Use
  Company Number: US-MELINTA THERAPEUTICS, LLC-US-MLNT-23-00652

PATIENT

DRUGS (1)
  1. METOPROLOL SUCCINATE [Suspect]
     Active Substance: METOPROLOL SUCCINATE
     Indication: Product used for unknown indication
     Dosage: UNK
     Route: 048

REACTIONS (8)
  - Pneumonia [Unknown]
  - Joint effusion [Unknown]
  - Ejection fraction decreased [Unknown]
  - Post-traumatic stress disorder [Unknown]
  - Prostatic specific antigen increased [Unknown]
  - Bronchitis [Unknown]
  - Cough [Unknown]
  - Nightmare [Unknown]

NARRATIVE: CASE EVENT DATE: 20230101
